FAERS Safety Report 19711611 (Version 1)
Quarter: 2021Q3

REPORT INFORMATION
  Report Type: Spontaneous
  Country: GB (occurrence: GB)
  Receive Date: 20210816
  Receipt Date: 20210816
  Transmission Date: 20211014
  Serious: Yes (Other)
  Sender: FDA-Public Use
  Company Number: GB-PFIZER INC-202101012497

PATIENT
  Age: 26 Year
  Sex: Female

DRUGS (1)
  1. CLINDAMYCIN HCL [Suspect]
     Active Substance: CLINDAMYCIN HYDROCHLORIDE
     Indication: DENTAL OPERATION
     Dosage: 150 MG, FOUR TIMES A DAY
     Route: 048
     Dates: start: 20210804, end: 20210804

REACTIONS (3)
  - Hypersensitivity [Recovered/Resolved]
  - Asthma [Recovered/Resolved]
  - Off label use [Unknown]

NARRATIVE: CASE EVENT DATE: 20210804
